FAERS Safety Report 7000245-0 (Version None)
Quarter: 2010Q3

REPORT INFORMATION
  Report Type: 
  Country: None (occurrence: None)
  Receive Date: 20100920
  Receipt Date: 20071015
  Transmission Date: 20110219
  Serious: Yes (Other)
  Sender: FDA-Public Use
  Company Number: US-ASTRAZENECA-2006UW21368

PATIENT
  Sex: Male

DRUGS (13)
  1. SEROQUEL [Suspect]
     Route: 048
  2. ZANTAC [Concomitant]
  3. ULTRACET [Concomitant]
     Dates: start: 20050115
  4. AMBIEN [Concomitant]
     Dates: start: 20050115
  5. CHLORDIAZEPOXIDE [Concomitant]
     Dosage: 25 MG DISPENSED
     Dates: start: 20050701
  6. LISINOPRIL [Concomitant]
     Dates: start: 20050701
  7. THIAMINE HCL [Concomitant]
     Dates: start: 20050701
  8. PROMETHAZINE [Concomitant]
     Dates: start: 20050701
  9. FOLIC ACID [Concomitant]
     Dates: start: 20050701
  10. HYDROCODONE [Concomitant]
     Dosage: 7.5/750
     Dates: start: 20070612
  11. ALPRAZOLAM [Concomitant]
     Dates: start: 20060511
  12. PROTONIX [Concomitant]
     Dates: start: 20060511
  13. FAMOTIDINE [Concomitant]
     Dates: start: 20070217

REACTIONS (2)
  - HYPERGLYCAEMIA [None]
  - PANCREATITIS [None]
